FAERS Safety Report 7433053-7 (Version None)
Quarter: 2011Q2

REPORT INFORMATION
  Report Type: 
  Country: None (occurrence: None)
  Receive Date: 20110422
  Receipt Date: 20110412
  Transmission Date: 20111010
  Serious: Yes (Hospitalization, Disabling, Other)
  Sender: FDA-Public Use
  Company Number: US-MERCK-1008USA00399

PATIENT
  Age: 40 Year
  Sex: Female

DRUGS (8)
  1. ACTONEL [Suspect]
     Indication: PROPHYLAXIS
     Route: 048
     Dates: start: 20040101, end: 20070820
  2. FOSAMAX [Suspect]
     Indication: PROPHYLAXIS
     Route: 048
  3. ACETAMINOPHEN [Concomitant]
     Route: 065
  4. PREDNISONE [Concomitant]
     Route: 048
     Dates: start: 20010101
  5. FOSAMAX [Suspect]
     Indication: OSTEOPOROSIS
     Route: 048
  6. VITAMINS (UNSPECIFIED) [Concomitant]
     Route: 065
  7. FOSAMAX [Suspect]
     Route: 048
     Dates: start: 20010901, end: 20040101
  8. FOSAMAX [Suspect]
     Route: 048
     Dates: start: 20010901, end: 20040101

REACTIONS (74)
  - SINUSITIS FUNGAL [None]
  - RENAL DISORDER [None]
  - HEADACHE [None]
  - TOOTH ABSCESS [None]
  - SOMNOLENCE [None]
  - SKIN LESION [None]
  - OEDEMA PERIPHERAL [None]
  - PURULENCE [None]
  - MYALGIA [None]
  - BUTTERFLY RASH [None]
  - CHEST PAIN [None]
  - ABSCESS [None]
  - DRUG INEFFECTIVE [None]
  - DENTAL CARIES [None]
  - HEARING IMPAIRED [None]
  - HAND-FOOT-AND-MOUTH DISEASE [None]
  - RESTLESS LEGS SYNDROME [None]
  - GASTROENTERITIS [None]
  - CANDIDIASIS [None]
  - TYPE 2 DIABETES MELLITUS [None]
  - ADVERSE DRUG REACTION [None]
  - DYSGEUSIA [None]
  - STRESS [None]
  - PROTEINURIA [None]
  - BURSITIS [None]
  - PAIN IN EXTREMITY [None]
  - NIGHT SWEATS [None]
  - NAUSEA [None]
  - PYREXIA [None]
  - ASTHMA [None]
  - CLAUSTROPHOBIA [None]
  - INCREASED APPETITE [None]
  - HYPOTHYROIDISM [None]
  - HYPERGLYCAEMIA [None]
  - VOMITING [None]
  - VIRAL INFECTION [None]
  - LOOSE TOOTH [None]
  - FOREIGN BODY IN EYE [None]
  - EAR DISORDER [None]
  - OSTEONECROSIS OF JAW [None]
  - DRUG EXPOSURE DURING PREGNANCY [None]
  - LUPUS NEPHRITIS [None]
  - DIZZINESS [None]
  - HYPERTENSION [None]
  - RENAL FAILURE [None]
  - VARICOSE VEIN [None]
  - CARDIAC DISORDER [None]
  - OSTEOMYELITIS [None]
  - OVARIAN DISORDER [None]
  - DYSPEPSIA [None]
  - DIARRHOEA [None]
  - PERICARDITIS [None]
  - OSTEOPOROSIS [None]
  - BRONCHIAL HYPERREACTIVITY [None]
  - ARTHRALGIA [None]
  - INFECTION [None]
  - TOOTH DISORDER [None]
  - ABDOMINAL DISCOMFORT [None]
  - NECROTISING ULCERATIVE GINGIVOSTOMATITIS [None]
  - TOOTH FRACTURE [None]
  - PANIC ATTACK [None]
  - FATIGUE [None]
  - ANXIETY [None]
  - DIABETES MELLITUS [None]
  - UTERINE DISORDER [None]
  - SPEECH DISORDER [None]
  - RHEUMATOID ARTHRITIS [None]
  - TOOTHACHE [None]
  - PLEURISY [None]
  - PERIODONTITIS [None]
  - RAYNAUD'S PHENOMENON [None]
  - GLOMERULONEPHRITIS MEMBRANOUS [None]
  - GINGIVAL INFECTION [None]
  - EYE HAEMORRHAGE [None]
